FAERS Safety Report 7681822-0 (Version None)
Quarter: 2011Q3

REPORT INFORMATION
  Report Type: 
  Country: None (occurrence: None)
  Receive Date: 20110813
  Receipt Date: 20110805
  Transmission Date: 20111222
  Serious: Yes (Hospitalization)
  Sender: FDA-Public Use
  Company Number: US-AMGEN-USASP2011039893

PATIENT
  Age: 84 Year
  Sex: Female

DRUGS (9)
  1. FUROSEMIDE [Concomitant]
  2. CLONIDINE [Concomitant]
  3. NITROGLYCERIN [Concomitant]
  4. NOVOLOG [Concomitant]
  5. COLACE [Concomitant]
  6. ALBUTEROL SULFATE AUTOHALER [Concomitant]
     Route: 055
  7. ARANESP [Suspect]
     Indication: RENAL FAILURE CHRONIC
  8. LOSARTAN POTASSIUM [Concomitant]
  9. OMEPRAZOLE [Concomitant]

REACTIONS (1)
  - HAEMATEMESIS [None]
